FAERS Safety Report 9741603 (Version 1)
Quarter: 2013Q4

REPORT INFORMATION
  Report Type: Spontaneous
  Country: IT (occurrence: IT)
  Receive Date: 20131210
  Receipt Date: 20131210
  Transmission Date: 20140711
  Serious: Yes (Hospitalization)
  Sender: FDA-Public Use
  Company Number: IT-ROCHE-1316487

PATIENT
  Age: 64 Year
  Sex: Female

DRUGS (9)
  1. MABTHERA [Suspect]
     Indication: DIFFUSE LARGE B-CELL LYMPHOMA
     Route: 042
     Dates: start: 20130611, end: 20131112
  2. ADRIBLASTINA [Suspect]
     Indication: DIFFUSE LARGE B-CELL LYMPHOMA
     Route: 042
     Dates: start: 20130611, end: 20131112
  3. VINCRISTINE [Suspect]
     Indication: DIFFUSE LARGE B-CELL LYMPHOMA
     Route: 042
     Dates: start: 20130611, end: 20131112
  4. URBASON (ITALY) [Concomitant]
     Indication: PREMEDICATION
     Route: 042
     Dates: start: 20130611, end: 20131112
  5. KYTRIL [Concomitant]
     Indication: PREMEDICATION
     Route: 042
     Dates: start: 20130611, end: 20131112
  6. TACHIPIRINA [Concomitant]
     Indication: PREMEDICATION
     Route: 048
     Dates: start: 20130611, end: 20131112
  7. TRIMETON (ITALY) [Concomitant]
     Indication: PREMEDICATION
     Route: 042
     Dates: start: 20130611, end: 20131112
  8. ZANTAC [Concomitant]
     Indication: PROPHYLAXIS
     Route: 042
     Dates: start: 20130611, end: 20131112
  9. ENDOXAN [Concomitant]
     Indication: CHEMOTHERAPY
     Route: 042
     Dates: start: 20130611, end: 20131112

REACTIONS (1)
  - Venous thrombosis [Recovering/Resolving]
